FAERS Safety Report 7296633-8 (Version None)
Quarter: 2011Q1

REPORT INFORMATION
  Report Type: 
  Country: None (occurrence: None)
  Receive Date: 20110216
  Receipt Date: 20110210
  Transmission Date: 20110831
  Serious: Yes (Death)
  Sender: FDA-Public Use
  Company Number: PHHY2011MY04536

PATIENT
  Age: 52 Year
  Sex: Male

DRUGS (1)
  1. GLEEVEC [Suspect]
     Indication: CHRONIC MYELOID LEUKAEMIA

REACTIONS (4)
  - TONGUE NEOPLASM MALIGNANT STAGE UNSPECIFIED [None]
  - METASTASES TO LUNG [None]
  - METASTASES TO NECK [None]
  - NEOPLASM MALIGNANT [None]
